FAERS Safety Report 13582496 (Version 2)
Quarter: 2017Q3

REPORT INFORMATION
  Report Type: Spontaneous
  Country: IT (occurrence: IT)
  Receive Date: 20170525
  Receipt Date: 20170713
  Transmission Date: 20171127
  Serious: Yes (Hospitalization)
  Sender: FDA-Public Use
  Company Number: IT-SA-2017SA089344

PATIENT
  Age: 73 Year
  Sex: Male
  Weight: 80 kg

DRUGS (8)
  1. FLUOROURACILE [Suspect]
     Active Substance: FLUOROURACIL
     Indication: ADENOCARCINOMA OF COLON
     Route: 042
     Dates: start: 20170511, end: 20170511
  2. IRINOTECAN [Suspect]
     Active Substance: IRINOTECAN
     Indication: ADENOCARCINOMA OF COLON
     Route: 042
     Dates: start: 20170315, end: 20170315
  3. FLUOROURACILE [Suspect]
     Active Substance: FLUOROURACIL
     Indication: ADENOCARCINOMA OF COLON
     Route: 042
     Dates: start: 20170511, end: 20170511
  4. ZALTRAP [Suspect]
     Active Substance: ZIV-AFLIBERCEPT
     Indication: ADENOCARCINOMA OF COLON
     Route: 042
     Dates: start: 20170329, end: 20170329
  5. ZALTRAP [Suspect]
     Active Substance: ZIV-AFLIBERCEPT
     Indication: ADENOCARCINOMA OF COLON
     Route: 042
     Dates: start: 20170511, end: 20170511
  6. FLUOROURACILE [Suspect]
     Active Substance: FLUOROURACIL
     Indication: ADENOCARCINOMA OF COLON
     Route: 042
     Dates: start: 20170315, end: 20170315
  7. FLUOROURACILE [Suspect]
     Active Substance: FLUOROURACIL
     Indication: ADENOCARCINOMA OF COLON
     Route: 042
     Dates: start: 20170315, end: 20170315
  8. IRINOTECAN [Suspect]
     Active Substance: IRINOTECAN
     Indication: ADENOCARCINOMA OF COLON
     Route: 042
     Dates: start: 20170511, end: 20170511

REACTIONS (4)
  - Dehydration [Recovered/Resolved]
  - Stomatitis [Recovered/Resolved]
  - Decreased appetite [Recovered/Resolved]
  - Abdominal pain [Recovered/Resolved]

NARRATIVE: CASE EVENT DATE: 20170505
